FAERS Safety Report 6214820-4 (Version None)
Quarter: 2009Q2

REPORT INFORMATION
  Report Type: 
  Country: None (occurrence: None)
  Receive Date: 20090604
  Receipt Date: 20090522
  Transmission Date: 20091009
  Serious: Yes (Hospitalization)
  Sender: FDA-Public Use
  Company Number: SE-PFIZER INC-2009218797

PATIENT
  Age: 62 Year

DRUGS (2)
  1. SERTRALINE HCL [Suspect]
  2. WARFARIN [Suspect]
     Indication: ATRIAL FIBRILLATION

REACTIONS (1)
  - POST PROCEDURAL HAEMORRHAGE [None]
